FAERS Safety Report 19770850 (Version 1)
Quarter: 2021Q3

REPORT INFORMATION
  Report Type: Spontaneous
  Country: US (occurrence: US)
  Receive Date: 20210901
  Receipt Date: 20210901
  Transmission Date: 20211014
  Serious: Yes (Other)
  Sender: FDA-Public Use
  Company Number: US-SA-2021SA287563

PATIENT
  Sex: Male

DRUGS (1)
  1. DUPIXENT [Suspect]
     Active Substance: DUPILUMAB
     Indication: ILLNESS
     Dosage: 300 MG; QOW
     Route: 058
     Dates: start: 202008

REACTIONS (7)
  - Product dose omission issue [Unknown]
  - Pulmonary haemorrhage [Unknown]
  - Injection site pain [Unknown]
  - Pneumonia [Unknown]
  - Product administered at inappropriate site [Unknown]
  - Product preparation error [Unknown]
  - Product use in unapproved indication [Unknown]

NARRATIVE: CASE EVENT DATE: 2021
